FAERS Safety Report 22653443 (Version 1)
Quarter: 2023Q2

REPORT INFORMATION
  Report Type: Spontaneous
  Country: US (occurrence: US)
  Receive Date: 20230629
  Receipt Date: 20230629
  Transmission Date: 20230722
  Serious: Yes (Hospitalization)
  Sender: FDA-Public Use
  Company Number: US-CADILA HEALTHCARE LIMITED-US-ZYDUS-095021

PATIENT

DRUGS (3)
  1. LANSOPRAZOLE [Suspect]
     Active Substance: LANSOPRAZOLE
     Indication: Helicobacter gastritis
     Dosage: 30 MILLIGRAM, BID
     Route: 065
  2. AMOXICILLIN [Suspect]
     Active Substance: AMOXICILLIN
     Indication: Helicobacter gastritis
     Dosage: 500 MILLIGRAM, BID
     Route: 065
  3. CLARITHROMYCIN [Suspect]
     Active Substance: CLARITHROMYCIN
     Indication: Helicobacter gastritis
     Dosage: 500 MILLIGRAM, BID
     Route: 065

REACTIONS (2)
  - Autoimmune haemolytic anaemia [Unknown]
  - Pulmonary embolism [Unknown]
